FAERS Safety Report 9769356 (Version 1)
Quarter: 2013Q4

REPORT INFORMATION
  Report Type: Report from Study
  Country: US (occurrence: US)
  Receive Date: 20131218
  Receipt Date: 20131218
  Transmission Date: 20140711
  Serious: Yes (Death)
  Sender: FDA-Public Use
  Company Number: US-ASTELLAS-2013US012997

PATIENT
  Age: 55 Year
  Sex: Female

DRUGS (4)
  1. ERLOTINIB TABLET [Suspect]
     Indication: BREAST CANCER METASTATIC
     Dosage: UNK
     Route: 065
  2. HERCEPTIN [Suspect]
     Indication: BREAST CANCER METASTATIC
     Dosage: UNK
     Route: 065
  3. PERTUZUMAB [Suspect]
     Indication: BREAST CANCER METASTATIC
     Dosage: 420 MG, UNKNOWN/D
     Route: 065
  4. ZELBORAF [Suspect]
     Indication: BREAST CANCER METASTATIC
     Dosage: UNK
     Route: 065

REACTIONS (2)
  - Off label use [Unknown]
  - Death [Fatal]
